FAERS Safety Report 17257227 (Version 1)
Quarter: 2020Q1

REPORT INFORMATION
  Report Type: Report from Study
  Country: US (occurrence: US)
  Receive Date: 20200110
  Receipt Date: 20200110
  Transmission Date: 20200409
  Serious: Yes (Other)
  Sender: FDA-Public Use
  Company Number: US-PFIZER INC-2020009642

PATIENT
  Age: 65 Year
  Sex: Female

DRUGS (3)
  1. CYTARABINE. [Suspect]
     Active Substance: CYTARABINE
     Indication: ACUTE MYELOID LEUKAEMIA
     Dosage: 20 MG/M2, CYCLIC (DAYS 1-10 OF 28-DAY CYCLE)
  2. VENETOCLAX. [Suspect]
     Active Substance: VENETOCLAX
     Indication: ACUTE MYELOID LEUKAEMIA
     Dosage: UNK
  3. VENETOCLAX. [Suspect]
     Active Substance: VENETOCLAX
     Dosage: 600 MG, DAILY (RAPID DOSE ESCALATION)

REACTIONS (2)
  - Subdural haematoma [Recovered/Resolved]
  - Febrile neutropenia [Recovered/Resolved]
